FAERS Safety Report 24271662 (Version 1)
Quarter: 2024Q3

REPORT INFORMATION
  Report Type: Report from Study
  Country: CA (occurrence: CA)
  Receive Date: 20240902
  Receipt Date: 20240902
  Transmission Date: 20241017
  Serious: Yes (Death)
  Sender: AMGEN
  Company Number: CA-Vifor (International) Inc.-VIT-2024-07749

PATIENT
  Age: 81 Year
  Sex: Female

DRUGS (1)
  1. AVACOPAN [Suspect]
     Active Substance: AVACOPAN
     Indication: Anti-neutrophil cytoplasmic antibody positive vasculitis
     Dosage: BID (TWO TIMES A DAY)
     Route: 048
     Dates: start: 20240414, end: 20240713

REACTIONS (1)
  - Death [Fatal]

NARRATIVE: CASE EVENT DATE: 20240713
